FAERS Safety Report 18930669 (Version 1)
Quarter: 2021Q1

REPORT INFORMATION
  Report Type: Spontaneous
  Country: LV (occurrence: LV)
  Receive Date: 20210223
  Receipt Date: 20210223
  Transmission Date: 20210420
  Serious: Yes (Hospitalization)
  Sender: FDA-Public Use
  Company Number: LV-PFIZER INC-2021151315

PATIENT
  Age: 17 Year
  Sex: Female
  Weight: 92 kg

DRUGS (1)
  1. SOLU?MEDROL [Suspect]
     Active Substance: METHYLPREDNISOLONE SODIUM SUCCINATE
     Indication: ALOPECIA
     Dosage: 250 MG, 1X/DAY
     Route: 042
     Dates: start: 20210125, end: 20210127

REACTIONS (7)
  - Off label use [Unknown]
  - Anxiety [Recovered/Resolved]
  - Increased appetite [Recovered/Resolved]
  - Thirst [Recovered/Resolved]
  - Generalised oedema [Recovered/Resolved]
  - Pain of skin [Recovered/Resolved]
  - Skin discomfort [Recovered/Resolved]

NARRATIVE: CASE EVENT DATE: 20210125
